FAERS Safety Report 4945636-4 (Version None)
Quarter: 2006Q1

REPORT INFORMATION
  Report Type: 
  Country: None (occurrence: None)
  Receive Date: 20060316
  Receipt Date: 20051221
  Transmission Date: 20060701
  Serious: Yes (Death, Life-Threatening, Hospitalization)
  Sender: FDA-Public Use
  Company Number: US-MERCK-0512USA03554

PATIENT
  Age: 62 Year
  Sex: Female
  Weight: 73 kg

DRUGS (16)
  1. VIOXX [Suspect]
     Indication: ARTHRITIS
     Route: 048
     Dates: start: 20010314, end: 20030727
  2. VIOXX [Suspect]
     Route: 048
     Dates: start: 20010314, end: 20030727
  3. DIOVAN [Concomitant]
     Route: 048
  4. FOSAMAX [Concomitant]
     Route: 048
  5. FUROSEMIDE [Concomitant]
     Route: 065
  6. K-DUR 10 [Concomitant]
     Route: 048
  7. PEPCID [Concomitant]
     Route: 048
  8. PLAVIX [Concomitant]
     Route: 048
  9. TIAZAC [Concomitant]
     Route: 048
  10. HYDROCHLOROTHIAZIDE AND TRIAMTERENE [Concomitant]
     Route: 048
  11. ZOCOR [Concomitant]
     Route: 048
  12. VITAMIN B (UNSPECIFIED) [Concomitant]
     Route: 065
  13. CENTRUM [Concomitant]
     Route: 065
  14. CITRACAL [Concomitant]
     Route: 065
  15. GLUCOSAMINE [Concomitant]
     Route: 065
  16. VITAMIN E [Concomitant]
     Route: 065

REACTIONS (32)
  - ANGINA PECTORIS [None]
  - ANGINA UNSTABLE [None]
  - ATRIAL FIBRILLATION [None]
  - BRAIN HERNIATION [None]
  - BRONCHITIS [None]
  - CARDIOMEGALY [None]
  - CAROTID ARTERY STENOSIS [None]
  - CAROTID BRUIT [None]
  - CARPAL TUNNEL SYNDROME [None]
  - CEREBRAL INFARCTION [None]
  - CHEST PAIN [None]
  - CHRONIC OBSTRUCTIVE PULMONARY DISEASE [None]
  - CORONARY ARTERY DISEASE [None]
  - DIABETES MELLITUS [None]
  - FATIGUE [None]
  - GOUT [None]
  - HYPERCAPNIA [None]
  - HYPERTENSIVE HEART DISEASE [None]
  - INTERMITTENT CLAUDICATION [None]
  - LETHARGY [None]
  - PLEURAL EFFUSION [None]
  - PROCEDURAL HYPERTENSION [None]
  - PROTEINURIA [None]
  - PULMONARY OEDEMA [None]
  - RENAL ARTERY STENOSIS [None]
  - RENAL FAILURE [None]
  - RENAL FAILURE CHRONIC [None]
  - RESPIRATORY FAILURE [None]
  - STRESS [None]
  - SUBARACHNOID HAEMORRHAGE [None]
  - TRANSIENT ISCHAEMIC ATTACK [None]
  - WOUND INFECTION STAPHYLOCOCCAL [None]
